FAERS Safety Report 9999665 (Version 2)
Quarter: 2014Q2

REPORT INFORMATION
  Report Type: Spontaneous
  Country: US (occurrence: US)
  Receive Date: 20140312
  Receipt Date: 20140418
  Transmission Date: 20141212
  Serious: Yes (Other)
  Sender: FDA-Public Use
  Company Number: US-FRI-1000060269

PATIENT
  Age: 63 Year
  Sex: Male
  Weight: 93 kg

DRUGS (26)
  1. VIIBRYD [Suspect]
     Indication: DEPRESSION
     Dosage: 10MG
     Route: 048
     Dates: start: 201402, end: 201402
  2. VIIBRYD [Suspect]
     Indication: ANXIETY
     Dosage: 20MG
     Route: 048
     Dates: start: 201402, end: 201402
  3. VIIBRYD [Suspect]
     Dosage: 40MG
     Route: 048
     Dates: start: 201402, end: 201402
  4. BUSPAR [Concomitant]
     Indication: ANXIETY
     Dosage: 10MG (FREQUENCY UNKNOWN)
  5. ALBUTEROL [Concomitant]
     Indication: DYSPNOEA
     Dosage: 90MCG (FREQUENCY UNKNOWN)
  6. AMLEXANOX [Concomitant]
     Indication: APHTHOUS STOMATITIS
  7. ASPIRIN [Concomitant]
     Indication: ATRIAL FIBRILLATION
     Dosage: 81MG (FREQUENCY UNKNOWN)
  8. LIPITOR [Concomitant]
     Indication: HYPERLIPIDAEMIA
     Dosage: 40MG (FREQUENCY UNKNOWN)
  9. DILTIAZEM [Concomitant]
     Indication: ATRIAL FIBRILLATION
     Dosage: 120MG (FREQUENCY UNKNOWN)
  10. VITAMIN D3 [Concomitant]
     Indication: HYPOVITAMINOSIS
  11. FLONASE [Concomitant]
     Indication: NASAL CONGESTION
  12. FOLIC ACID [Concomitant]
     Dosage: 400MG (FREQUENCY UNKNOWN)
  13. DULERA [Concomitant]
     Indication: DYSPNOEA
     Dosage: 100/5MCG (FREQUENCY UNKNOWN)
  14. LASIX [Concomitant]
     Indication: CARDIAC FAILURE CONGESTIVE
     Dosage: 40MG (FREQUENCY UNKNOWN)
  15. GINGER ROOT [Concomitant]
  16. PREVACID [Concomitant]
     Indication: GASTROOESOPHAGEAL REFLUX DISEASE
     Dosage: 30MG (FREQUENCY UNKNOWN)
  17. METFORMIN [Concomitant]
     Indication: HYPERGLYCAEMIA
     Dosage: 500 (UNIT AND FREQUENCY UNKNOWN)
  18. METFORMIN [Concomitant]
     Indication: METABOLIC SYNDROME
  19. METOPROLOL ER [Concomitant]
     Indication: HYPERTENSION
     Dosage: 200 (UNIT AND FREQUENCY UNKNOWN)
  20. MULTIVITAMIN [Concomitant]
  21. OMEGA-3 [Concomitant]
     Indication: HYPERLIPIDAEMIA
  22. PAXIL [Concomitant]
     Indication: DEPRESSION
     Dosage: 40MG (FREQUENCY UNKNOWN)
  23. POTASSIUM [Concomitant]
     Dosage: 20MEQ (FREQUENCY UNKNOWN)
  24. RIVAROXABAN [Concomitant]
     Dosage: 20MG TABLET (FREQUENCY UNKNOWN)
  25. TRAMADOL [Concomitant]
     Indication: PAIN
     Dosage: 50MG (FREQUENCY UNKNOWN)
  26. VITAMIN E [Concomitant]

REACTIONS (4)
  - Suicidal ideation [Recovered/Resolved]
  - Hyperhidrosis [Recovered/Resolved]
  - Feeling abnormal [Recovered/Resolved]
  - Off label use [Recovered/Resolved]
